FAERS Safety Report 24230963 (Version 1)
Quarter: 2024Q3

REPORT INFORMATION
  Report Type: Spontaneous
  Country: US (occurrence: US)
  Receive Date: 20240821
  Receipt Date: 20240821
  Transmission Date: 20241017
  Serious: Yes (Hospitalization)
  Sender: ROCHE
  Company Number: US-ROCHE-10000059397

PATIENT
  Sex: Male

DRUGS (1)
  1. XOLAIR [Suspect]
     Active Substance: OMALIZUMAB
     Indication: Dermatitis allergic
     Dosage: ONGOING, STRENGTH: 300MG/2ML
     Route: 058
     Dates: start: 202404

REACTIONS (1)
  - Pneumonia [Unknown]
